FAERS Safety Report 10686366 (Version 5)
Quarter: 2015Q2

REPORT INFORMATION
  Report Type: Report from Study
  Country: US (occurrence: US)
  Receive Date: 20141231
  Receipt Date: 20150420
  Transmission Date: 20150821
  Serious: Yes (Hospitalization, Other)
  Sender: FDA-Public Use
  Company Number: US-ACTELION-A-NJ2014-110271

PATIENT
  Age: 41 Year
  Sex: Female

DRUGS (5)
  1. TYVASO [Concomitant]
     Active Substance: TREPROSTINIL
  2. REMODULIN [Concomitant]
     Active Substance: TREPROSTINIL
  3. COUMADIN [Concomitant]
     Active Substance: WARFARIN SODIUM
  4. ADCIRCA [Concomitant]
     Active Substance: TADALAFIL
  5. TRACLEER [Suspect]
     Active Substance: BOSENTAN\BOSENTAN MONOHYDRATE
     Indication: PULMONARY ARTERIAL HYPERTENSION
     Dosage: UNK
     Route: 048

REACTIONS (16)
  - Dyspnoea [Unknown]
  - Nervousness [Unknown]
  - Fatigue [Unknown]
  - Lung infection [Unknown]
  - Condition aggravated [Unknown]
  - Atrial fibrillation [Unknown]
  - Disorientation [Unknown]
  - Pancreatitis [Unknown]
  - Abdominal pain [Unknown]
  - Tremor [Unknown]
  - Drug hypersensitivity [Unknown]
  - Bacteraemia [Unknown]
  - Syncope [Unknown]
  - Fluid retention [Unknown]
  - Dialysis [Unknown]
  - Hypotension [Unknown]

NARRATIVE: CASE EVENT DATE: 20141104
